FAERS Safety Report 19277818 (Version 1)
Quarter: 2021Q2

REPORT INFORMATION
  Report Type: Spontaneous
  Country: US (occurrence: US)
  Receive Date: 20210520
  Receipt Date: 20210520
  Transmission Date: 20210717
  Serious: No
  Sender: FDA-Public Use
  Company Number: US-JNJFOC-20210518465

PATIENT
  Sex: Female
  Weight: 77.18 kg

DRUGS (1)
  1. WOMENS ROGAINE UNSCENTED [Suspect]
     Active Substance: MINOXIDIL
     Indication: ALOPECIA
     Dosage: INITIALLY USED JUST 1/2 A CAP BUT EVENTUALLY USED MAYBE A CAP AND A HALF. ONCE A DAY;
     Route: 061

REACTIONS (4)
  - Product formulation issue [Unknown]
  - Product use in unapproved indication [Unknown]
  - Overdose [Unknown]
  - Poor quality product administered [Unknown]
